FAERS Safety Report 10071726 (Version 2)
Quarter: 2014Q2

REPORT INFORMATION
  Report Type: Spontaneous
  Country: US (occurrence: US)
  Receive Date: 20140411
  Receipt Date: 20140416
  Transmission Date: 20141212
  Serious: Yes (Hospitalization, Other)
  Sender: FDA-Public Use
  Company Number: US-AMGEN-USASP2014025602

PATIENT
  Age: 73 Year
  Sex: Male

DRUGS (2)
  1. ENBREL [Suspect]
     Indication: RHEUMATOID ARTHRITIS
     Dosage: 50 MG, QWK
     Route: 065
     Dates: start: 2007
  2. PROPANOLOL                         /00030001/ [Suspect]
     Indication: TREMOR
     Dosage: UNK
     Route: 065

REACTIONS (11)
  - Aortic aneurysm [Not Recovered/Not Resolved]
  - Cataract [Recovered/Resolved]
  - Tremor [Not Recovered/Not Resolved]
  - Anxiety [Not Recovered/Not Resolved]
  - Feeling abnormal [Recovered/Resolved]
  - Dry eye [Not Recovered/Not Resolved]
  - Blood pressure increased [Unknown]
  - Respiratory rate increased [Unknown]
  - Hypotension [Not Recovered/Not Resolved]
  - Erythema [Not Recovered/Not Resolved]
  - Paraesthesia [Not Recovered/Not Resolved]
